FAERS Safety Report 10232179 (Version 1)
Quarter: 2014Q2

REPORT INFORMATION
  Report Type: Spontaneous
  Country: US (occurrence: US)
  Receive Date: 20140612
  Receipt Date: 20140612
  Transmission Date: 20141212
  Serious: No
  Sender: FDA-Public Use
  Company Number: US-BIOGENIDEC-2014BI051513

PATIENT
  Age: 53 Year
  Sex: Female

DRUGS (19)
  1. TECFIDERA [Suspect]
     Indication: MULTIPLE SCLEROSIS
     Route: 048
     Dates: start: 20140411
  2. ALDACTONE [Concomitant]
  3. AMANTADINE HCL [Concomitant]
  4. ASPIRIN [Concomitant]
  5. CELEXA [Concomitant]
  6. COSOPT [Concomitant]
  7. FIBERCON [Concomitant]
  8. KLOR-CON M20 [Concomitant]
  9. LASIX [Concomitant]
  10. LUMIGAN [Concomitant]
  11. MAGOX 400 [Concomitant]
  12. METFORMIN HCL [Concomitant]
  13. NEURONTIN [Concomitant]
  14. OSCAL 500/200 D-3 [Concomitant]
  15. REQUIP [Concomitant]
  16. TENORMIN [Concomitant]
  17. VITAMIN C [Concomitant]
  18. ZOCOR [Concomitant]
  19. ULTRAM [Concomitant]

REACTIONS (1)
  - Fatigue [Not Recovered/Not Resolved]
